FAERS Safety Report 9829041 (Version 3)
Quarter: 2014Q3

REPORT INFORMATION
  Report Type: Spontaneous
  Country: US (occurrence: US)
  Receive Date: 20140118
  Receipt Date: 20140902
  Transmission Date: 20150326
  Serious: Yes (Hospitalization, Other)
  Sender: FDA-Public Use
  Company Number: US-009507513-1401USA007551

PATIENT
  Sex: Female
  Weight: 87.53 kg

DRUGS (1)
  1. NUVARING [Suspect]
     Active Substance: ETHINYL ESTRADIOL\ETONOGESTREL
     Indication: CONTRACEPTION
     Dosage: UNK
     Route: 067
     Dates: end: 20130522

REACTIONS (4)
  - Pulmonary embolism [Unknown]
  - Ovarian cyst [Unknown]
  - Sarcoidosis [Unknown]
  - Oophorectomy [Unknown]

NARRATIVE: CASE EVENT DATE: 20130131
